FAERS Safety Report 24399065 (Version 1)
Quarter: 2024Q4

REPORT INFORMATION
  Report Type: Spontaneous
  Country: US (occurrence: None)
  Receive Date: 20241004
  Receipt Date: 20241004
  Transmission Date: 20250115
  Serious: Yes (Other)
  Sender: Public
  Company Number: None

PATIENT
  Age: 63 Year
  Sex: Male
  Weight: 102.6 kg

DRUGS (12)
  1. WEGOVY [Suspect]
     Active Substance: SEMAGLUTIDE
     Indication: Weight increased
     Dosage: OTHER STRENGTH : STANDARD INJECTOR;?OTHER QUANTITY : 1 INJECTION(S);?OTHER FREQUENCY : ONE EACH WEEK
     Route: 058
  2. AMLODIPINE [Suspect]
     Active Substance: AMLODIPINE BESYLATE
  3. CARVEDILOL [Suspect]
  4. LISINOPRIL [Suspect]
     Active Substance: LISINOPRIL
  5. COREG [Concomitant]
     Active Substance: CARVEDILOL
  6. ALLOPURINOL [Concomitant]
     Active Substance: ALLOPURINOL
  7. tamulosin plus vitamins [Concomitant]
  8. TRELEGY ELLIPTA [Concomitant]
     Active Substance: FLUTICASONE FUROATE\UMECLIDINIUM BROMIDE\VILANTEROL TRIFENATATE
  9. TRAZODONE [Concomitant]
     Active Substance: TRAZODONE HYDROCHLORIDE
  10. male multivitamin [Concomitant]
  11. SUDAFED [Concomitant]
     Active Substance: PSEUDOEPHEDRINE HYDROCHLORIDE
  12. ZYRTEC [Concomitant]
     Active Substance: CETIRIZINE HYDROCHLORIDE

REACTIONS (4)
  - Syncope [None]
  - Loss of consciousness [None]
  - Blood pressure decreased [None]
  - Thyroid hormones increased [None]

NARRATIVE: CASE EVENT DATE: 20240929
